FAERS Safety Report 5247194-6 (Version None)
Quarter: 2007Q1

REPORT INFORMATION
  Report Type: 
  Country: None (occurrence: None)
  Receive Date: 20070221
  Receipt Date: 20070207
  Transmission Date: 20070707
  Serious: Yes (Hospitalization)
  Sender: FDA-Public Use
  Company Number: 2006S1000144

PATIENT
  Age: 77 Year
  Sex: Male

DRUGS (5)
  1. CUBICIN [Suspect]
     Indication: ENDOCARDITIS
     Dates: start: 20060613
  2. CUBICIN [Suspect]
     Indication: STAPHYLOCOCCAL BACTERAEMIA
     Dates: start: 20060613
  3. WARFARIN SODIUM [Concomitant]
  4. RIFAMPIN [Concomitant]
  5. ZYVOX [Concomitant]

REACTIONS (10)
  - ALDOLASE INCREASED [None]
  - ARTHRITIS BACTERIAL [None]
  - BACTERAEMIA [None]
  - BLOOD CREATINE PHOSPHOKINASE INCREASED [None]
  - DOCUMENTED HYPERSENSITIVITY TO ADMINISTERED DRUG [None]
  - INTERNATIONAL NORMALISED RATIO INCREASED [None]
  - INTERVERTEBRAL DISC DEGENERATION [None]
  - OSTEOARTHRITIS [None]
  - PROTHROMBIN TIME PROLONGED [None]
  - STAPHYLOCOCCAL INFECTION [None]
